FAERS Safety Report 17749473 (Version 1)
Quarter: 2020Q2

REPORT INFORMATION
  Report Type: Spontaneous
  Country: FR (occurrence: FR)
  Receive Date: 20200506
  Receipt Date: 20200506
  Transmission Date: 20200714
  Serious: Yes (Other)
  Sender: FDA-Public Use
  Company Number: FR-LEADINGPHARMA-FR-2020LEALIT00063

PATIENT
  Age: 60 Year
  Sex: Male

DRUGS (2)
  1. HYDROXYUREA CAPSULES USP [Suspect]
     Active Substance: HYDROXYUREA
     Route: 065
  2. HYDROXYUREA CAPSULES USP [Suspect]
     Active Substance: HYDROXYUREA
     Indication: POLYCYTHAEMIA VERA
     Dosage: USED 14 G/WEEK FOR 4 YEARS
     Route: 065

REACTIONS (2)
  - Acquired gene mutation [Unknown]
  - Drug intolerance [Unknown]
